FAERS Safety Report 18209127 (Version 2)
Quarter: 2020Q4

REPORT INFORMATION
  Report Type: Spontaneous
  Country: US (occurrence: US)
  Receive Date: 20200828
  Receipt Date: 20201005
  Transmission Date: 20210113
  Serious: Yes (Other)
  Sender: FDA-Public Use
  Company Number: NVSC2020US237053

PATIENT
  Age: 15 Year
  Sex: Male

DRUGS (5)
  1. ERYTHROPOIETIN [Suspect]
     Active Substance: ERYTHROPOIETIN
     Indication: EVANS SYNDROME
     Dosage: 40,000 UNITS/DOSE (4 DOSES)
     Route: 065
  2. MYCOPHENOLATE MOFETIL. [Suspect]
     Active Substance: MYCOPHENOLATE MOFETIL
     Indication: EVANS SYNDROME
     Dosage: 750 MG, BID
     Route: 065
  3. METHYLPREDNISOLONE. [Suspect]
     Active Substance: METHYLPREDNISOLONE
     Indication: EVANS SYNDROME
     Dosage: 20 MG/KG (APPROX 20 MG/KG/DOSE (1 G) FOR 3 DOSES)
     Route: 042
  4. PREDNISONE. [Suspect]
     Active Substance: PREDNISONE
     Indication: EVANS SYNDROME
     Dosage: 1 TO 2 MG/KG, QD
     Route: 065
  5. RITUXIMAB. [Suspect]
     Active Substance: RITUXIMAB
     Indication: EVANS SYNDROME
     Dosage: 375 MG/M2/DOSE (4 DOSES)
     Route: 065

REACTIONS (3)
  - Evans syndrome [Recovering/Resolving]
  - Product use in unapproved indication [Unknown]
  - Treatment failure [Unknown]
